FAERS Safety Report 9845936 (Version 2)
Quarter: 2014Q3

REPORT INFORMATION
  Report Type: Spontaneous
  Country: US (occurrence: None)
  Receive Date: 20140122
  Receipt Date: 20140731
  Transmission Date: 20150326
  Serious: Yes (Hospitalization, Other)
  Sender: FDA-Public Use
  Company Number: 2014-PEL-000011

PATIENT
  Sex: Male

DRUGS (3)
  1. MIDAZOLAM [Concomitant]
     Active Substance: MIDAZOLAM\MIDAZOLAM HYDROCHLORIDE
  2. SEVOFLURANE. [Suspect]
     Active Substance: SEVOFLURANE
     Indication: ANAESTHESIA
     Dosage: INHALATION
  3. FENTANYL (FENTANYL) [Concomitant]
     Active Substance: FENTANYL

REACTIONS (2)
  - Haemoglobin decreased [None]
  - Pulmonary alveolar haemorrhage [None]
